FAERS Safety Report 17140043 (Version 1)
Quarter: 2019Q4

REPORT INFORMATION
  Report Type: Spontaneous
  Country: US (occurrence: US)
  Receive Date: 20191211
  Receipt Date: 20191211
  Transmission Date: 20200122
  Serious: No
  Sender: FDA-Public Use
  Company Number: US-UCBSA-2016017181

PATIENT
  Age: 46 Year
  Sex: Female
  Weight: 72.5 kg

DRUGS (11)
  1. VIMPAT [Suspect]
     Active Substance: LACOSAMIDE
     Indication: EPILEPSY
     Dosage: 200 MG, 3X/DAY (TID)
     Route: 048
  2. VITAMIN D3 [Concomitant]
     Active Substance: CHOLECALCIFEROL
     Indication: SUPPLEMENTATION THERAPY
     Dosage: NR DOSE
     Route: 048
  3. ALTACE [Concomitant]
     Active Substance: RAMIPRIL
     Indication: PROPHYLAXIS
     Dosage: 2.5 MG, ONCE DAILY (QD)
     Route: 048
  4. LANTUS [Concomitant]
     Active Substance: INSULIN GLARGINE
     Indication: TYPE 1 DIABETES MELLITUS
     Dosage: SLIDING SCALE DOSE
     Route: 058
  5. PHENOBARBITAL. [Concomitant]
     Active Substance: PHENOBARBITAL
     Indication: EPILEPSY
     Dosage: 75 MG, QHS
  6. INSULIN [Concomitant]
     Active Substance: INSULIN NOS
     Indication: DIABETES MELLITUS
     Dosage: SLIDING SCALE DOSE
     Route: 058
  7. IBUPROFEN. [Concomitant]
     Active Substance: IBUPROFEN
     Indication: HEADACHE
     Dosage: UNK, AS NEEDED (PRN)
     Route: 048
  8. FOLIC ACID. [Concomitant]
     Active Substance: FOLIC ACID
     Indication: SUPPLEMENTATION THERAPY
     Dosage: 1 MG, ONCE DAILY (QD)
     Route: 048
  9. PHENOBARBITAL. [Concomitant]
     Active Substance: PHENOBARBITAL
     Dosage: 2 IN AM AND 1 PM
     Route: 048
  10. SYNTHROID [Concomitant]
     Active Substance: LEVOTHYROXINE SODIUM
     Indication: THYROID DISORDER
     Dosage: 50 ?G, ONCE DAILY (QD)
     Route: 048
  11. FISH OIL [Concomitant]
     Active Substance: FISH OIL
     Indication: SUPPLEMENTATION THERAPY
     Dosage: UNK, ONCE DAILY (QD)
     Route: 048

REACTIONS (7)
  - Intentional product misuse [Unknown]
  - Dizziness [Recovered/Resolved]
  - Inappropriate schedule of product administration [Unknown]
  - Somnolence [Recovered/Resolved]
  - Rash [Recovered/Resolved]
  - Joint swelling [Recovered/Resolved]
  - Constipation [Recovered/Resolved]
